FAERS Safety Report 5369725-8 (Version None)
Quarter: 2007Q2

REPORT INFORMATION
  Report Type: 
  Country: None (occurrence: None)
  Receive Date: 20070621
  Receipt Date: 20070614
  Transmission Date: 20071010
  Serious: Yes (Death)
  Sender: FDA-Public Use
  Company Number: 2007SP011908

PATIENT
  Age: 32 Year
  Sex: Male

DRUGS (2)
  1. PEG-INTRON [Suspect]
     Indication: HEPATITIS C
     Dosage: 1.5 MCG/KG
     Dates: start: 20061201, end: 20070601
  2. ALPRAZOLAM [Concomitant]

REACTIONS (2)
  - SWELLING [None]
  - URINARY TRACT INFECTION [None]
